FAERS Safety Report 6405011-2 (Version None)
Quarter: 2009Q4

REPORT INFORMATION
  Report Type: 
  Country: None (occurrence: None)
  Receive Date: 20091019
  Receipt Date: 20091013
  Transmission Date: 20100525
  Serious: Yes (Other)
  Sender: FDA-Public Use
  Company Number: BR-PFIZER INC-2009199258

PATIENT
  Age: 66 Year

DRUGS (6)
  1. LIPITOR [Suspect]
     Indication: BLOOD CHOLESTEROL INCREASED
     Dosage: UNKNOWN POSOLOGY
     Dates: start: 20080101
  2. IRON POLYMALTOSE [Concomitant]
     Dosage: UNK
  3. AAS [Concomitant]
     Dosage: UNK
  4. CALCIUM [Concomitant]
     Dosage: UNK
  5. TIBOLONE [Concomitant]
     Indication: HORMONE REPLACEMENT THERAPY
  6. GINKO BILOBA [Concomitant]
     Indication: HORMONE REPLACEMENT THERAPY

REACTIONS (3)
  - HAEMATURIA [None]
  - MYALGIA [None]
  - THYROID CANCER [None]
